FAERS Safety Report 16674396 (Version 3)
Quarter: 2019Q4

REPORT INFORMATION
  Report Type: Spontaneous
  Country: FR (occurrence: FR)
  Receive Date: 20190806
  Receipt Date: 20191226
  Transmission Date: 20200122
  Serious: Yes (Hospitalization)
  Sender: FDA-Public Use
  Company Number: FR-MYLANLABS-2018M1092862

PATIENT
  Age: 54 Year
  Sex: Female

DRUGS (20)
  1. METFORMIN [Suspect]
     Active Substance: METFORMIN HYDROCHLORIDE
     Indication: TYPE 2 DIABETES MELLITUS
     Dosage: UNK(2000 MG)
     Route: 048
     Dates: start: 2001
  2. REPAGLINIDE. [Suspect]
     Active Substance: REPAGLINIDE
     Indication: PRODUCT USED FOR UNKNOWN INDICATION
     Dosage: UNK
     Route: 048
     Dates: start: 20180108
  3. TRINITRIN [Concomitant]
     Active Substance: NITROGLYCERIN
     Indication: MYOCARDIAL INFARCTION
     Dosage: UNK UNK, PRN(TOTAL DOSE: 1 DF PRN)
     Route: 050
     Dates: start: 20150523
  4. LEVOTHYROX [Concomitant]
     Active Substance: LEVOTHYROXINE
     Indication: HYPERTHYROIDISM
     Dosage: UNK(TOTAL DOSE: 75 UG)
     Route: 048
     Dates: start: 20110406
  5. SOTAGLIFLOZIN [Suspect]
     Active Substance: SOTAGLIFLOZIN
     Dosage: 2 DF, QD
     Route: 048
     Dates: start: 20180323
  6. LANTUS [Suspect]
     Active Substance: INSULIN GLARGINE
     Dosage: 76 U, QD
     Route: 058
     Dates: start: 20180301, end: 20180301
  7. AMAREL [Suspect]
     Active Substance: GLIMEPIRIDE
     Dosage: 3 MG(TOTAL DAILY DOSE 3 MG  )
     Route: 048
     Dates: start: 2015, end: 20180606
  8. AMAREL [Suspect]
     Active Substance: GLIMEPIRIDE
     Dosage: 1.5 MG (TOTAL DAILY DOSE 1.5 MG )
     Route: 048
     Dates: start: 20180607, end: 20180611
  9. AMOXICILLIN. [Concomitant]
     Active Substance: AMOXICILLIN
     Indication: NASOPHARYNGITIS
     Dosage: UNK( TOTAL DOSE: 3 G )
     Route: 048
     Dates: start: 20180522, end: 20180529
  10. BISOPROLOL [Concomitant]
     Active Substance: BISOPROLOL
     Indication: HYPERTENSION
     Dosage: UNK(TOTAL DOSE: 7.5 MG )
     Route: 048
     Dates: start: 201505
  11. LANTUS [Suspect]
     Active Substance: INSULIN GLARGINE
     Dosage: 84 U, QD
     Route: 058
     Dates: start: 20180309
  12. AMAREL [Suspect]
     Active Substance: GLIMEPIRIDE
     Dosage: 1.5 MG
     Route: 048
     Dates: start: 20180608, end: 20180613
  13. SOTAGLIFLOZIN [Suspect]
     Active Substance: SOTAGLIFLOZIN
     Indication: TYPE 2 DIABETES MELLITUS
     Dosage: 2 DF, QD
     Route: 048
     Dates: start: 20180525
  14. LANTUS [Suspect]
     Active Substance: INSULIN GLARGINE
     Indication: TYPE 2 DIABETES MELLITUS
     Dosage: 72 U, QD
     Route: 058
     Dates: start: 20180226, end: 20180228
  15. LANTUS [Suspect]
     Active Substance: INSULIN GLARGINE
     Dosage: 80 U, QD
     Route: 058
     Dates: start: 20180302, end: 20180308
  16. AMAREL [Suspect]
     Active Substance: GLIMEPIRIDE
     Indication: TYPE 2 DIABETES MELLITUS
     Dosage: 3 MG
     Route: 048
     Dates: start: 2015, end: 20180607
  17. ASPIRINE [Concomitant]
     Active Substance: ASPIRIN
     Indication: MYOCARDIAL INFARCTION
     Dosage: UNK(TOTAL DOSE: 100 MG)
     Route: 048
     Dates: start: 201609
  18. PARACETAMOL [Concomitant]
     Active Substance: ACETAMINOPHEN
     Indication: NASOPHARYNGITIS
     Dosage: UNK(TOTAL DOSE: 1 G)
     Route: 048
     Dates: start: 20180522, end: 20180529
  19. RAMIPRIL. [Concomitant]
     Active Substance: RAMIPRIL
     Indication: HYPERTENSION
     Dosage: UNK(TOTAL DOSE: 20 MG)
     Route: 048
     Dates: start: 201609
  20. SOTAGLIFLOZIN [Suspect]
     Active Substance: SOTAGLIFLOZIN
     Dosage: 2 DF, QD
     Route: 048
     Dates: start: 20180420

REACTIONS (2)
  - Hypoglycaemia [Recovered/Resolved]
  - Palpitations [Recovered/Resolved]

NARRATIVE: CASE EVENT DATE: 20180606
